FAERS Safety Report 12523184 (Version 2)
Quarter: 2017Q3

REPORT INFORMATION
  Report Type: Spontaneous
  Country: GB (occurrence: GB)
  Receive Date: 20160702
  Receipt Date: 20170704
  Transmission Date: 20171127
  Serious: Yes (Other)
  Sender: FDA-Public Use
  Company Number: GB-AMGEN-GBRSP2016083223

PATIENT
  Age: 49 Year
  Sex: Female

DRUGS (1)
  1. ENBREL [Suspect]
     Active Substance: ETANERCEPT
     Indication: PSORIATIC ARTHROPATHY
     Dosage: 50 MG, WEEKLY
     Route: 058
     Dates: start: 20160613

REACTIONS (4)
  - Optic neuritis [Unknown]
  - Fatigue [Unknown]
  - Eyelid ptosis [Unknown]
  - Somnolence [Unknown]
